FAERS Safety Report 11995313 (Version 1)
Quarter: 2016Q1

REPORT INFORMATION
  Report Type: Other
  Country: US (occurrence: US)
  Receive Date: 20160203
  Receipt Date: 20160203
  Transmission Date: 20160526
  Serious: Yes (Death)
  Sender: FDA-Public Use
  Company Number: US-CONCORDIA PHARMACEUTICALS INC.-CO-OR-US-2016-003

PATIENT
  Age: 54 Year
  Sex: Male

DRUGS (4)
  1. DEXTROSE INFUSION [Suspect]
     Active Substance: DEXTROSE
  2. PREDNISOLONE. [Suspect]
     Active Substance: PREDNISOLONE
     Indication: PRODUCT USED FOR UNKNOWN INDICATION
  3. FREQUENT HIGH COMPLEX CARBOHYDRATES [Suspect]
     Active Substance: CARBOHYDRATES
  4. OCTREOTIDE. [Suspect]
     Active Substance: OCTREOTIDE

REACTIONS (1)
  - Hypoglycaemia [None]
